FAERS Safety Report 18079525 (Version 1)
Quarter: 2020Q3

REPORT INFORMATION
  Report Type: Report from Study
  Country: BE (occurrence: BE)
  Receive Date: 20200728
  Receipt Date: 20200728
  Transmission Date: 20201103
  Serious: Yes (Hospitalization)
  Sender: FDA-Public Use
  Company Number: BE-TAKEDA-2020TUS032316

PATIENT
  Age: 70 Year
  Sex: Female

DRUGS (1)
  1. BORTEZOMIB. [Suspect]
     Active Substance: BORTEZOMIB
     Indication: PRODUCT USED FOR UNKNOWN INDICATION
     Dosage: 1.72 MILLIGRAM
     Route: 058
     Dates: start: 20200709

REACTIONS (1)
  - Hospitalisation [Recovering/Resolving]

NARRATIVE: CASE EVENT DATE: 20200723
